FAERS Safety Report 23759047 (Version 1)
Quarter: 2024Q2

REPORT INFORMATION
  Report Type: Spontaneous
  Country: US (occurrence: None)
  Receive Date: 20240418
  Receipt Date: 20240418
  Transmission Date: 20240716
  Serious: No
  Sender: FDA-Public Use
  Company Number: US-ROCHE-3478820

PATIENT

DRUGS (4)
  1. KADCYLA [Suspect]
     Active Substance: ADO-TRASTUZUMAB EMTANSINE
     Indication: Product used for unknown indication
     Dosage: LAST DOSE: 22/MAY/2023, (ADJUVANT 14 CYCLES), CYCLES GIVEN: 12/12
     Route: 042
     Dates: start: 20220926
  2. IBRANCE [Suspect]
     Active Substance: PALBOCICLIB
     Indication: Metastasis
     Dosage: TAKE 1 PO Q DAY ON DAYS 1-21 THEN 7 DAYS OFF
     Route: 048
     Dates: start: 20230721
  3. FEMARA [Concomitant]
     Active Substance: LETROZOLE
     Indication: Metastasis
     Dates: start: 20230721
  4. TCHP [Concomitant]
     Dosage: NEO ADJ- TRASTUZUMAB 6MG/KG (8MG/KG LD) + PERTUZUMAB 420MG (840MG LD) IV + CARBOPLATIN AUC 6 + DOCET
     Dates: start: 20220322

REACTIONS (1)
  - Disease progression [Unknown]
